FAERS Safety Report 7320326-1 (Version None)
Quarter: 2011Q1

REPORT INFORMATION
  Report Type: 
  Country: None (occurrence: None)
  Receive Date: 20110228
  Receipt Date: 20110217
  Transmission Date: 20110831
  Serious: Yes (Death, Other)
  Sender: FDA-Public Use
  Company Number: US-WATSON-2011-02201

PATIENT
  Age: 59 Year
  Sex: Female

DRUGS (9)
  1. RITUXIMAB [Suspect]
     Indication: MANTLE CELL LYMPHOMA
     Dosage: UNK
  2. DOXORUBICIN [Suspect]
     Indication: MANTLE CELL LYMPHOMA
     Dosage: UNK
  3. ETOPOSIDE [Suspect]
     Indication: MANTLE CELL LYMPHOMA
     Dosage: 190 MG, BID
     Route: 042
  4. CARMUSTINE [Suspect]
     Indication: MANTLE CELL LYMPHOMA
     Dosage: 570 MG ON DAY 6
     Route: 042
  5. VINCRISTINE [Suspect]
     Indication: MANTLE CELL LYMPHOMA
     Dosage: UNK
  6. CYTARABINE [Suspect]
     Indication: MANTLE CELL LYMPHOMA
     Dosage: 190 MG, BID
     Route: 042
  7. MELPHALAN [Suspect]
     Indication: MANTLE CELL LYMPHOMA
     Dosage: 265 MG DAY 1
     Route: 042
  8. CYCLOPHOSPHAMIDE [Suspect]
     Indication: MANTLE CELL LYMPHOMA
     Dosage: UNK
  9. METHYLPREDNISOLONE ACETATE [Suspect]
     Indication: MANTLE CELL LYMPHOMA
     Dosage: UNK

REACTIONS (4)
  - PNEUMONIA [None]
  - PNEUMOTHORAX [None]
  - RENAL FAILURE [None]
  - PULMONARY OEDEMA [None]
